FAERS Safety Report 8099348-1 (Version None)
Quarter: 2012Q1

REPORT INFORMATION
  Report Type: 
  Country: None (occurrence: None)
  Receive Date: 20120129
  Receipt Date: 20111019
  Transmission Date: 20120608
  Serious: No
  Sender: FDA-Public Use
  Company Number: US-ABBOTT-11P-163-0866715-00

PATIENT
  Age: 31 Year
  Sex: Female

DRUGS (5)
  1. HYDROMORPHONE HCL [Concomitant]
     Indication: ARTHRALGIA
     Dosage: UP TO 4 TIMES A DAY AS NEEDED
  2. KLONOPIN [Concomitant]
     Indication: BIPOLAR DISORDER
     Dosage: 1 MG DAILY AT BEDTIME
  3. KLONOPIN [Concomitant]
     Indication: SLEEP DISORDER THERAPY
  4. EFFEXOR [Concomitant]
     Indication: BIPOLAR DISORDER
  5. HUMIRA [Suspect]
     Indication: PSORIATIC ARTHROPATHY
     Dates: start: 20110501, end: 20111006

REACTIONS (7)
  - LIP DRY [None]
  - ARTHRALGIA [None]
  - PYREXIA [None]
  - DIARRHOEA [None]
  - IRRITABLE BOWEL SYNDROME [None]
  - FATIGUE [None]
  - PALPITATIONS [None]
